FAERS Safety Report 9531362 (Version 1)
Quarter: 2013Q3

REPORT INFORMATION
  Report Type: Spontaneous
  Country: US (occurrence: None)
  Receive Date: 20130916
  Receipt Date: 20130916
  Transmission Date: 20140515
  Serious: Yes (Other)
  Sender: FDA-Public Use
  Company Number: None

PATIENT
  Age: 80 Year
  Sex: Female
  Weight: 52.62 kg

DRUGS (2)
  1. FORTEO [Suspect]
     Indication: OSTEOPOROSIS
     Dosage: 28 DAYS INJECT 20 MCG, ONCE DAILY INTO THE MUSCLE
     Route: 030
  2. FORTEO [Suspect]
     Indication: SPINAL COMPRESSION FRACTURE
     Dosage: 28 DAYS INJECT 20 MCG, ONCE DAILY INTO THE MUSCLE
     Route: 030

REACTIONS (1)
  - Back pain [None]
